FAERS Safety Report 24864049 (Version 4)
Quarter: 2025Q4

REPORT INFORMATION
  Report Type: Spontaneous
  Country: US (occurrence: US)
  Receive Date: 20250120
  Receipt Date: 20251118
  Transmission Date: 20260118
  Serious: Yes (Other)
  Sender: NOVARTIS
  Company Number: US-002147023-NVSC2025US008676

PATIENT
  Age: 25 Year
  Sex: Male

DRUGS (2)
  1. KYMRIAH [Suspect]
     Active Substance: TISAGENLECLEUCEL
     Indication: Haematological neoplasm
     Dosage: UNK, ONCE/SINGLE
     Route: 042
     Dates: start: 202010, end: 202010
  2. KYMRIAH [Suspect]
     Active Substance: TISAGENLECLEUCEL
     Dosage: UNK, ONCE/SINGLE (EXTRA BAG)
     Route: 042
     Dates: start: 202404, end: 202404

REACTIONS (1)
  - Paternal exposure during pregnancy [Unknown]
